FAERS Safety Report 10096642 (Version 1)
Quarter: 2014Q2

REPORT INFORMATION
  Report Type: Spontaneous
  Country: NZ (occurrence: NZ)
  Receive Date: 20140422
  Receipt Date: 20140422
  Transmission Date: 20141212
  Serious: Yes (Other)
  Sender: FDA-Public Use
  Company Number: NZ-MYLANLABS-2014S1008287

PATIENT
  Age: 69 Year
  Sex: Female

DRUGS (3)
  1. ATORVASTATIN [Suspect]
     Indication: HYPERCHOLESTEROLAEMIA
     Dosage: 10MG
     Route: 065
  2. METOPROLOL [Concomitant]
     Indication: HYPERTENSION
     Dosage: 23.75MG
     Route: 065
  3. ASPIRIN [Concomitant]
     Dosage: 100MG
     Route: 065

REACTIONS (1)
  - Myasthenia gravis [Recovered/Resolved]
